FAERS Safety Report 24310398 (Version 1)
Quarter: 2024Q3

REPORT INFORMATION
  Report Type: Spontaneous
  Country: US (occurrence: US)
  Receive Date: 20240912
  Receipt Date: 20240912
  Transmission Date: 20241017
  Serious: Yes (Hospitalization, Other)
  Sender: GLAXOSMITHKLINE
  Company Number: US-GLAXOSMITHKLINE-US2024GSK111989

PATIENT

DRUGS (1)
  1. LAMOTRIGINE [Suspect]
     Active Substance: LAMOTRIGINE
     Indication: Bipolar disorder
     Dosage: 21 G
     Route: 048

REACTIONS (10)
  - Overdose [Recovering/Resolving]
  - Suicide attempt [Recovering/Resolving]
  - Unresponsive to stimuli [Recovering/Resolving]
  - Tachyarrhythmia [Recovered/Resolved]
  - Haemodynamic instability [Recovering/Resolving]
  - Nervous system disorder [Recovered/Resolved]
  - Deep vein thrombosis [Recovering/Resolving]
  - Toxicity to various agents [Recovering/Resolving]
  - Cardiac disorder [Recovering/Resolving]
  - Rebound effect [Recovering/Resolving]
